FAERS Safety Report 8686645 (Version 2)
Quarter: 2013Q4

REPORT INFORMATION
  Report Type: Report from Study
  Country: US (occurrence: US)
  Receive Date: 20120727
  Receipt Date: 20131101
  Transmission Date: 20140711
  Serious: No
  Sender: FDA-Public Use
  Company Number: US-009507513-1207USA006941

PATIENT
  Sex: Male
  Weight: 86.8 kg

DRUGS (4)
  1. REBETOL [Suspect]
     Indication: HEPATITIS C
     Dosage: 6 DF, QD
     Route: 048
  2. GS-9451 [Concomitant]
     Indication: HEPATITIS C
     Dosage: 200 MG, QD
     Route: 048
  3. GS-5885 [Concomitant]
     Indication: HEPATITIS C
     Dosage: 90 MG, QD
     Route: 048
  4. GS-9190 [Concomitant]
     Indication: HEPATITIS C
     Dosage: 30 MG, BID
     Route: 048

REACTIONS (2)
  - Overdose [Unknown]
  - No adverse event [Unknown]
